FAERS Safety Report 24046904 (Version 1)
Quarter: 2024Q3

REPORT INFORMATION
  Report Type: Spontaneous
  Country: ES (occurrence: ES)
  Receive Date: 20240703
  Receipt Date: 20240703
  Transmission Date: 20241017
  Serious: Yes (Other)
  Sender: PFIZER
  Company Number: None

PATIENT
  Age: 20 Year
  Sex: Female

DRUGS (2)
  1. FLUCONAZOLE [Suspect]
     Active Substance: FLUCONAZOLE
     Dosage: UNK
     Dates: start: 202405
  2. CARIPRAZINE [Suspect]
     Active Substance: CARIPRAZINE
     Dosage: UNK

REACTIONS (2)
  - Parkinsonism [Unknown]
  - Sedation [Unknown]

NARRATIVE: CASE EVENT DATE: 20240526
